FAERS Safety Report 7374760-4 (Version None)
Quarter: 2011Q1

REPORT INFORMATION
  Report Type: 
  Country: None (occurrence: None)
  Receive Date: 20110325
  Receipt Date: 20101014
  Transmission Date: 20110831
  Serious: No
  Sender: FDA-Public Use
  Company Number: US-MYLANLABS-2010S1019130

PATIENT
  Age: 66 Year
  Sex: Male
  Weight: 104.33 kg

DRUGS (10)
  1. FENTANYL-100 [Suspect]
     Indication: BACK PAIN
     Dosage: Q 72 HOURS
     Route: 062
  2. METFORMIN [Concomitant]
     Indication: DIABETES MELLITUS
  3. ZOLOFT [Concomitant]
     Indication: DEPRESSION
  4. HYDROCHLOROTHIAZIDE [Concomitant]
     Indication: BLOOD PRESSURE INCREASED
  5. MELOXICAM [Concomitant]
  6. ROXICET [Concomitant]
     Indication: BREAKTHROUGH PAIN
  7. VERAPAMIL [Concomitant]
     Indication: BLOOD PRESSURE INCREASED
  8. LOTENSIN [Concomitant]
     Indication: BLOOD PRESSURE INCREASED
  9. OMEPRAZOLE [Concomitant]
     Indication: GASTROOESOPHAGEAL REFLUX DISEASE
  10. SERZONE [Concomitant]

REACTIONS (3)
  - APPLICATION SITE PAIN [None]
  - APPLICATION SITE ERYTHEMA [None]
  - APPLICATION SITE BLEEDING [None]
